FAERS Safety Report 24869333 (Version 1)
Quarter: 2025Q1

REPORT INFORMATION
  Report Type: Spontaneous
  Country: EG (occurrence: EG)
  Receive Date: 20250121
  Receipt Date: 20250121
  Transmission Date: 20250409
  Serious: Yes (Hospitalization)
  Sender: ELI LILLY AND COMPANY
  Company Number: EG-ELI_LILLY_AND_COMPANY-EG202501008322

PATIENT
  Age: 85 Year
  Sex: Male

DRUGS (2)
  1. FORTEO [Suspect]
     Active Substance: TERIPARATIDE
     Indication: Osteoporosis
     Dosage: 20 UG, DAILY
     Route: 058
     Dates: start: 202409
  2. FORTEO [Suspect]
     Active Substance: TERIPARATIDE
     Indication: Spinal fracture

REACTIONS (4)
  - Myocardial ischaemia [Recovered/Resolved]
  - Drug dose omission by device [Not Recovered/Not Resolved]
  - Back pain [Not Recovered/Not Resolved]
  - Gait disturbance [Not Recovered/Not Resolved]

NARRATIVE: CASE EVENT DATE: 20250110
